FAERS Safety Report 23477216 (Version 1)
Quarter: 2024Q1

REPORT INFORMATION
  Report Type: Report from Study
  Country: US (occurrence: US)
  Receive Date: 20240204
  Receipt Date: 20240204
  Transmission Date: 20240410
  Serious: No
  Sender: FDA-Public Use
  Company Number: US-EXELIXIS-CABO-23065213

PATIENT
  Age: 54 Year
  Sex: Female
  Weight: 110.98 kg

DRUGS (2)
  1. CABOMETYX [Suspect]
     Active Substance: CABOZANTINIB S-MALATE
     Indication: Renal cancer
     Dosage: 20 MG BY MOUTH TWICE DAILY
     Route: 048
     Dates: start: 20221222, end: 20230616
  2. CABOMETYX [Suspect]
     Active Substance: CABOZANTINIB S-MALATE
     Dosage: 20 MG BY MOUTH TWICE DAILY
     Route: 048

REACTIONS (4)
  - Peripheral swelling [Recovered/Resolved]
  - Limb discomfort [Unknown]
  - Skin ulcer [Recovered/Resolved]
  - Inappropriate schedule of product administration [Unknown]

NARRATIVE: CASE EVENT DATE: 20221222
